FAERS Safety Report 6398199-3 (Version None)
Quarter: 2009Q4

REPORT INFORMATION
  Report Type: 
  Country: None (occurrence: None)
  Receive Date: 20091013
  Receipt Date: 20090928
  Transmission Date: 20100525
  Serious: Yes (Other)
  Sender: FDA-Public Use
  Company Number: PHHY2009DE41664

PATIENT
  Sex: Female

DRUGS (3)
  1. CGS 20267 T30748+ [Suspect]
     Indication: BREAST CANCER
     Dosage: 2.5 MG DAILY
     Route: 048
     Dates: start: 20080922, end: 20090706
  2. CARDULAR [Concomitant]
     Dosage: 4 MG, UNK
  3. THYRONAJOD [Concomitant]
     Dosage: 125 MG, UNK
     Dates: start: 19950101

REACTIONS (7)
  - ALOPECIA [None]
  - BONE DENSITY DECREASED [None]
  - HAIR DISORDER [None]
  - INSOMNIA [None]
  - MYALGIA [None]
  - RETINAL VASCULAR THROMBOSIS [None]
  - WEIGHT INCREASED [None]
